FAERS Safety Report 6612344-3 (Version None)
Quarter: 2010Q1

REPORT INFORMATION
  Report Type: 
  Country: None (occurrence: None)
  Receive Date: 20100302
  Receipt Date: 20100302
  Transmission Date: 20100710
  Serious: Yes (Life-Threatening, Hospitalization)
  Sender: FDA-Public Use
  Company Number: None

PATIENT
  Sex: Female
  Weight: 77.2022 kg

DRUGS (5)
  1. CAPECITABINE [Suspect]
     Indication: BREAST CANCER
     Dosage: 2000 MG TWICE DAILY PO
     Route: 048
     Dates: start: 20100120, end: 20100210
  2. ZOLEDRONIC ACID 3. 5 MG [Suspect]
     Indication: METASTASES TO BONE
     Dosage: 3 . 5 MG EVERY 28 DAYS IV DRIP
     Route: 041
     Dates: start: 20100120, end: 20100120
  3. MS CONTIN [Concomitant]
  4. MORPHINE SULFATE [Concomitant]
  5. AZOR [Concomitant]

REACTIONS (8)
  - ANAEMIA [None]
  - AZOTAEMIA [None]
  - ENCEPHALOPATHY [None]
  - HYPERKALAEMIA [None]
  - MENTAL STATUS CHANGES [None]
  - NAUSEA [None]
  - RENAL FAILURE ACUTE [None]
  - VOMITING [None]
